FAERS Safety Report 8121139-3 (Version None)
Quarter: 2012Q1

REPORT INFORMATION
  Report Type: 
  Country: None (occurrence: None)
  Receive Date: 20120203
  Receipt Date: 20120124
  Transmission Date: 20120608
  Serious: Yes (Other)
  Sender: FDA-Public Use
  Company Number: 1000027548

PATIENT
  Age: 80 Year
  Sex: Female

DRUGS (5)
  1. CITALOPRAM HYDROBROMIDE [Suspect]
     Dosage: 1 DOSAGE FORM (1 DOSAGE FORMS, 1 IN D)
  2. OXAZEPAM [Concomitant]
  3. LAMICTAL [Concomitant]
  4. MEMANTINE HCL [Concomitant]
  5. IMOVANE (ZOPICLONE) [Concomitant]

REACTIONS (2)
  - LOSS OF CONSCIOUSNESS [None]
  - FALL [None]
